FAERS Safety Report 26154251 (Version 1)
Quarter: 2025Q4

REPORT INFORMATION
  Report Type: Spontaneous
  Country: GB (occurrence: GB)
  Receive Date: 20251215
  Receipt Date: 20251215
  Transmission Date: 20260118
  Serious: No
  Sender: MARKSANS PHARMA LIMITED
  Company Number: GB-MARKSANS PHARMA LIMITED-MPL202500121

PATIENT

DRUGS (1)
  1. IBUPROFEN [Suspect]
     Active Substance: IBUPROFEN
     Indication: Product used for unknown indication
     Dosage: 2 DOSAGE FORM (TWO CAPSULES)
     Route: 048

REACTIONS (5)
  - Paraesthesia [Unknown]
  - Oral discomfort [Unknown]
  - Tongue discomfort [Unknown]
  - Product taste abnormal [Unknown]
  - Product physical issue [Unknown]
